FAERS Safety Report 7670107-4 (Version None)
Quarter: 2011Q3

REPORT INFORMATION
  Report Type: 
  Country: None (occurrence: None)
  Receive Date: 20110808
  Receipt Date: 20110728
  Transmission Date: 20111222
  Serious: Yes (Hospitalization)
  Sender: FDA-Public Use
  Company Number: BR-ASTRAZENECA-2011SE45731

PATIENT
  Age: 67 Year
  Sex: Female
  Weight: 56 kg

DRUGS (2)
  1. ATACAND HCT [Suspect]
     Indication: HYPERTENSION
     Dosage: 16/12.5 MG
     Route: 048
     Dates: end: 20110701
  2. ATACAND HCT [Suspect]
     Indication: HYPERTENSION
     Dosage: 16/2.5 MG OD
     Route: 048
     Dates: start: 20110701

REACTIONS (9)
  - PALLOR [None]
  - DRUG INEFFECTIVE [None]
  - PERICARDIAL EFFUSION [None]
  - LYMPHADENITIS [None]
  - WEIGHT DECREASED [None]
  - PLEURAL EFFUSION [None]
  - BLOOD PRESSURE FLUCTUATION [None]
  - HYPERHIDROSIS [None]
  - PYREXIA [None]
